FAERS Safety Report 17216165 (Version 3)
Quarter: 2020Q1

REPORT INFORMATION
  Report Type: Spontaneous
  Country: JP (occurrence: JP)
  Receive Date: 20191230
  Receipt Date: 20200218
  Transmission Date: 20200409
  Serious: Yes (Other)
  Sender: FDA-Public Use
  Company Number: JP-SA-2019SA360810

PATIENT
  Age: 8 Year
  Sex: Male

DRUGS (3)
  1. IPD [Concomitant]
     Active Substance: SUPLATAST TOSILATE
  2. XYZAL [Suspect]
     Active Substance: LEVOCETIRIZINE DIHYDROCHLORIDE
     Indication: RHINITIS ALLERGIC
     Dosage: 2.5 MG, BID
     Route: 048
     Dates: start: 20190422
  3. PRANLUKAST [Concomitant]
     Active Substance: PRANLUKAST

REACTIONS (3)
  - Anal fissure haemorrhage [Recovering/Resolving]
  - Faeces hard [Unknown]
  - Anal fissure [Unknown]

NARRATIVE: CASE EVENT DATE: 20191121
